FAERS Safety Report 15391041 (Version 1)
Quarter: 2018Q3

REPORT INFORMATION
  Report Type: Spontaneous
  Country: JP (occurrence: JP)
  Receive Date: 20180917
  Receipt Date: 20180917
  Transmission Date: 20181010
  Serious: Yes (Life-Threatening, Hospitalization, Other)
  Sender: FDA-Public Use
  Company Number: JP-MACLEODS PHARMACEUTICALS US LTD-MAC2018016552

PATIENT

DRUGS (5)
  1. ESCITALOPRAM OXALATE. [Suspect]
     Active Substance: ESCITALOPRAM OXALATE
     Indication: HEADACHE
     Dosage: UNK
     Route: 065
  2. EPINEPHRINE. [Suspect]
     Active Substance: EPINEPHRINE
     Dosage: UNK
     Route: 065
  3. EPINEPHRINE. [Suspect]
     Active Substance: EPINEPHRINE
     Indication: PRODUCT USED FOR UNKNOWN INDICATION
     Dosage: UNK, THREE ADRENALINE INJECTIONS
     Route: 065
  4. LORAZEPAM. [Suspect]
     Active Substance: LORAZEPAM
     Indication: HEADACHE
  5. LORAZEPAM. [Suspect]
     Active Substance: LORAZEPAM
     Indication: ANXIETY DISORDER
     Dosage: UNK
     Route: 065

REACTIONS (7)
  - Coma [Recovering/Resolving]
  - Cardiogenic shock [Recovering/Resolving]
  - Left ventricle outflow tract obstruction [Recovering/Resolving]
  - Haemolytic anaemia [Recovering/Resolving]
  - Drug ineffective [Recovering/Resolving]
  - Pulseless electrical activity [Recovering/Resolving]
  - Eating disorder [Recovering/Resolving]
